FAERS Safety Report 7126871-6 (Version None)
Quarter: 2010Q4

REPORT INFORMATION
  Report Type: 
  Country: None (occurrence: None)
  Receive Date: 20101129
  Receipt Date: 20101115
  Transmission Date: 20110411
  Serious: Yes (Hospitalization)
  Sender: FDA-Public Use
  Company Number: US-AMGEN-USACT2010005956

PATIENT
  Sex: Female

DRUGS (6)
  1. PEGFILGRASTIM [Suspect]
     Indication: BREAST CANCER
     Dosage: UNK
     Dates: start: 20101110
  2. ADRIAMYCIN PFS [Suspect]
     Indication: BREAST CANCER
     Dosage: 106 MG, UNK
     Dates: start: 20101108
  3. CYTOXAN [Suspect]
     Indication: BREAST CANCER
     Dosage: 1056 MG, UNK
     Dates: start: 20101108
  4. ABRAXANE [Suspect]
     Indication: BREAST CANCER
     Dosage: 174 MG, UNK
     Dates: start: 20100510
  5. AVASTIN [Suspect]
     Indication: BREAST CANCER
     Dosage: 1085 MG, UNK
     Dates: start: 20100524
  6. CARBOPLATIN [Suspect]
     Indication: BREAST CANCER
     Dosage: 822 MG, UNK
     Dates: start: 20100524

REACTIONS (4)
  - HAEMOGLOBIN DECREASED [None]
  - ODYNOPHAGIA [None]
  - OROPHARYNGEAL PAIN [None]
  - WHITE BLOOD CELL COUNT DECREASED [None]
